FAERS Safety Report 9924444 (Version 1)
Quarter: 2014Q1

REPORT INFORMATION
  Report Type: Spontaneous
  Country: US (occurrence: None)
  Receive Date: 20140224
  Receipt Date: 20140224
  Transmission Date: 20141002
  Serious: Yes (Other)
  Sender: FDA-Public Use
  Company Number: None

PATIENT
  Age: 56 Year
  Sex: Male
  Weight: 86.18 kg

DRUGS (1)
  1. SIMVASTATIN 10 MG [Suspect]
     Indication: BLOOD CHOLESTEROL INCREASED
     Dosage: 1 PILL ONCE DAILY
     Route: 048
     Dates: start: 20140122, end: 20140222

REACTIONS (4)
  - Diarrhoea [None]
  - Vomiting [None]
  - Asthenia [None]
  - Arthralgia [None]
